FAERS Safety Report 11100034 (Version 2)
Quarter: 2015Q2

REPORT INFORMATION
  Report Type: Spontaneous
  Country: RU (occurrence: RU)
  Receive Date: 20150508
  Receipt Date: 20150515
  Transmission Date: 20150821
  Serious: Yes (Hospitalization)
  Sender: FDA-Public Use
  Company Number: RU-SA-2015SA058575

PATIENT
  Age: 66 Year
  Sex: Female

DRUGS (1)
  1. GLIBENCLAMIDE [Suspect]
     Active Substance: GLYBURIDE
     Indication: DIABETES MELLITUS
     Route: 065

REACTIONS (8)
  - Skin exfoliation [Unknown]
  - White blood cell count increased [Unknown]
  - Neutrophil toxic granulation present [Unknown]
  - Erythema [Recovered/Resolved]
  - Rash [Recovered/Resolved]
  - Body temperature increased [Unknown]
  - Toxic epidermal necrolysis [Unknown]
  - Skin erosion [Unknown]
